FAERS Safety Report 12290567 (Version 12)
Quarter: 2016Q4

REPORT INFORMATION
  Report Type: Spontaneous
  Country: US (occurrence: US)
  Receive Date: 20160421
  Receipt Date: 20161110
  Transmission Date: 20170207
  Serious: Yes (Death, Hospitalization)
  Sender: FDA-Public Use
  Company Number: US-ACTELION PHARMACEUTICALS US, INC.-A-NJ2016-134789

PATIENT
  Age: 73 Year
  Sex: Female

DRUGS (7)
  1. UPTRAVI [Suspect]
     Active Substance: SELEXIPAG
     Dosage: 800 MCG, BID
     Route: 048
  2. UPTRAVI [Suspect]
     Active Substance: SELEXIPAG
     Dosage: 200 MCG, BID
     Route: 048
     Dates: start: 20160331
  3. UPTRAVI [Suspect]
     Active Substance: SELEXIPAG
     Indication: PULMONARY ARTERIAL HYPERTENSION
     Dosage: 1000 MCG, BID
     Route: 048
  4. UPTRAVI [Suspect]
     Active Substance: SELEXIPAG
     Dosage: 400 MCG, BID
     Route: 048
  5. OPSUMIT [Suspect]
     Active Substance: MACITENTAN
     Indication: PULMONARY ARTERIAL HYPERTENSION
     Dosage: 10 MG, QD
     Route: 048
     Dates: start: 20160113, end: 2016
  6. UPTRAVI [Suspect]
     Active Substance: SELEXIPAG
     Dosage: 600 MCG, BID
     Route: 048
  7. SILDENAFIL. [Concomitant]
     Active Substance: SILDENAFIL

REACTIONS (16)
  - Cardiac disorder [Unknown]
  - Death [Fatal]
  - Abdominal distension [Unknown]
  - Weight decreased [Unknown]
  - Muscle tightness [Unknown]
  - Alopecia [Unknown]
  - Cardiac ablation [Unknown]
  - Arthralgia [Unknown]
  - Nausea [Unknown]
  - Pain in jaw [Unknown]
  - Clumsiness [Unknown]
  - Cardiac operation [Unknown]
  - Procedural complication [Unknown]
  - Peripheral swelling [Unknown]
  - Joint swelling [Unknown]
  - Atrial tachycardia [Unknown]

NARRATIVE: CASE EVENT DATE: 20161027
